FAERS Safety Report 15851940 (Version 1)
Quarter: 2019Q1

REPORT INFORMATION
  Report Type: Report from Study
  Country: US (occurrence: US)
  Receive Date: 20190122
  Receipt Date: 20190122
  Transmission Date: 20190417
  Serious: Yes (Other)
  Sender: FDA-Public Use
  Company Number: US-BEH-2019098466

PATIENT
  Age: 66 Year
  Sex: Female
  Weight: 109.75 kg

DRUGS (1)
  1. HIZENTRA [Suspect]
     Active Substance: HUMAN IMMUNOGLOBULIN G
     Indication: PRIMARY IMMUNODEFICIENCY SYNDROME
     Dosage: 16 G, QOW
     Route: 058
     Dates: start: 20190109, end: 20190114

REACTIONS (16)
  - Dyspnoea [Unknown]
  - Pruritus generalised [Unknown]
  - Malaise [Unknown]
  - Dyspnoea [Unknown]
  - Hot flush [Unknown]
  - Back pain [Unknown]
  - Neck pain [Unknown]
  - Generalised erythema [Unknown]
  - Fatigue [Unknown]
  - Dizziness [Unknown]
  - Headache [Unknown]
  - Pharyngeal oedema [Unknown]
  - Nausea [Unknown]
  - Swollen tongue [Unknown]
  - Abdominal distension [Unknown]
  - Chest pain [Unknown]

NARRATIVE: CASE EVENT DATE: 20190109
